FAERS Safety Report 6417489-9 (Version None)
Quarter: 2009Q4

REPORT INFORMATION
  Report Type: 
  Country: None (occurrence: None)
  Receive Date: 20091028
  Receipt Date: 20091026
  Transmission Date: 20100525
  Serious: Yes (Other)
  Sender: FDA-Public Use
  Company Number: FR-BRISTOL-MYERS SQUIBB COMPANY-14748123

PATIENT
  Age: 54 Year
  Sex: Male
  Weight: 60 kg

DRUGS (5)
  1. REYATAZ [Suspect]
  2. RITONAVIR [Suspect]
  3. NEXIUM [Suspect]
  4. PROZAC [Concomitant]
  5. CRESTOR [Concomitant]
     Indication: HYPERCHOLESTEROLAEMIA

REACTIONS (2)
  - DUODENAL ULCER [None]
  - PRURITUS [None]
